FAERS Safety Report 9958339 (Version 2)
Quarter: 2014Q1

REPORT INFORMATION
  Report Type: Report from Study
  Country: US (occurrence: US)
  Receive Date: 20140305
  Receipt Date: 20140305
  Transmission Date: 20141002
  Serious: Yes (Death)
  Sender: FDA-Public Use
  Company Number: US-ROCHE-1298311

PATIENT
  Sex: Female

DRUGS (1)
  1. NUTROPIN AQ [Suspect]
     Indication: RENAL FAILURE CHRONIC
     Dosage: STARTED 1 MONTH AGO
     Route: 058

REACTIONS (5)
  - Death [Fatal]
  - Abdominal pain upper [Unknown]
  - Headache [Unknown]
  - Fall [Unknown]
  - Aphagia [Unknown]
